FAERS Safety Report 6621007-X (Version None)
Quarter: 2010Q1

REPORT INFORMATION
  Report Type: 
  Country: None (occurrence: None)
  Receive Date: 20100309
  Receipt Date: 20100305
  Transmission Date: 20100710
  Serious: Yes (Death, Other)
  Sender: FDA-Public Use
  Company Number: PHHY2010BR02082

PATIENT
  Sex: Male

DRUGS (2)
  1. EXELON [Suspect]
     Indication: SENILE DEMENTIA
     Dosage: 9MG/5CM2, ONCE PER DAY
     Route: 062
     Dates: start: 20090101
  2. EXELON [Suspect]
     Dosage: 18MG/10CM2, ONCE PER DAY
     Route: 062

REACTIONS (2)
  - ASPIRATION BRONCHIAL [None]
  - RESPIRATORY FAILURE [None]
